FAERS Safety Report 13537539 (Version 1)
Quarter: 2017Q2

REPORT INFORMATION
  Report Type: Spontaneous
  Country: US (occurrence: US)
  Receive Date: 20170511
  Receipt Date: 20170511
  Transmission Date: 20170830
  Serious: Yes (Other)
  Sender: FDA-Public Use
  Company Number: US-ELI_LILLY_AND_COMPANY-US201705001376

PATIENT
  Age: 76 Year
  Sex: Male

DRUGS (1)
  1. GEMCITABINE HYDROCHLORIDE. [Suspect]
     Active Substance: GEMCITABINE HYDROCHLORIDE
     Indication: ADENOCARCINOMA PANCREAS
     Dosage: 1000 MG/M2, UNKNOWN
     Route: 065

REACTIONS (6)
  - Eastern Cooperative Oncology Group performance status worsened [Unknown]
  - Lung disorder [Unknown]
  - Leukopenia [Unknown]
  - Post thrombotic syndrome [Recovering/Resolving]
  - Pleural effusion [Unknown]
  - Thrombocytopenia [Unknown]
